FAERS Safety Report 10064336 (Version 1)
Quarter: 2014Q2

REPORT INFORMATION
  Report Type: Spontaneous
  Country: US (occurrence: US)
  Receive Date: 20140408
  Receipt Date: 20140408
  Transmission Date: 20141212
  Serious: Yes (Hospitalization)
  Sender: FDA-Public Use
  Company Number: US-BAYER-2014-048258

PATIENT
  Age: 48 Year
  Sex: Female

DRUGS (3)
  1. YAZ [Suspect]
  2. WELLBUTRIN [Concomitant]
  3. TOPAMAX [Concomitant]

REACTIONS (2)
  - Intracranial venous sinus thrombosis [None]
  - Jugular vein thrombosis [None]
